FAERS Safety Report 7879804-9 (Version None)
Quarter: 2011Q4

REPORT INFORMATION
  Report Type: 
  Country: None (occurrence: None)
  Receive Date: 20111101
  Receipt Date: 20100616
  Transmission Date: 20120403
  Serious: No
  Sender: FDA-Public Use
  Company Number: US-BAYER-201026069NA

PATIENT
  Sex: Male

DRUGS (3)
  1. AVELOX [Suspect]
     Indication: TOOTH DISORDER
     Dosage: 400 MG, QD
     Route: 048
  2. CORTICOSTEROIDS [Concomitant]
  3. UNKNOWN [Concomitant]

REACTIONS (2)
  - ARTHRALGIA [None]
  - HOT FLUSH [None]
